FAERS Safety Report 15855059 (Version 1)
Quarter: 2019Q1

REPORT INFORMATION
  Report Type: Spontaneous
  Country: GB (occurrence: GB)
  Receive Date: 20190122
  Receipt Date: 20190122
  Transmission Date: 20190417
  Serious: Yes (Death, Other)
  Sender: FDA-Public Use
  Company Number: GB-MALLINCKRODT-T201901162

PATIENT
  Age: 7 Year
  Sex: Female
  Weight: 17 kg

DRUGS (2)
  1. HEPARIN [Concomitant]
     Active Substance: HEPARIN SODIUM
     Indication: ANTICOAGULANT THERAPY
     Dosage: UNK
     Route: 065
  2. UVADEX [Suspect]
     Active Substance: METHOXSALEN
     Indication: ACUTE GRAFT VERSUS HOST DISEASE
     Dosage: UNK
     Route: 057
     Dates: start: 20181219

REACTIONS (5)
  - Weight fluctuation [Unknown]
  - Death [Fatal]
  - Haemoglobin abnormal [Unknown]
  - Product use in unapproved indication [Unknown]
  - Internal haemorrhage [Unknown]

NARRATIVE: CASE EVENT DATE: 20181231
